FAERS Safety Report 11441037 (Version 1)
Quarter: 2015Q3

REPORT INFORMATION
  Report Type: Spontaneous
  Country: US (occurrence: US)
  Receive Date: 20150821
  Receipt Date: 20150821
  Transmission Date: 20151125
  Serious: Yes (Hospitalization)
  Sender: FDA-Public Use
  Company Number: US-ELI_LILLY_AND_COMPANY-US200711006353

PATIENT
  Age: 36 Year
  Sex: Male
  Weight: 104.31 kg

DRUGS (3)
  1. CAFFEINE. [Concomitant]
     Active Substance: CAFFEINE
  2. ETHANOL [Concomitant]
     Active Substance: ALCOHOL
     Dates: start: 200711
  3. CYMBALTA [Suspect]
     Active Substance: DULOXETINE HYDROCHLORIDE
     Indication: DEPRESSION
     Dosage: 30 MG, UNK
     Dates: start: 20071117, end: 20071121

REACTIONS (2)
  - Syncope [Unknown]
  - Atrial fibrillation [Unknown]

NARRATIVE: CASE EVENT DATE: 20071121
